FAERS Safety Report 8646022 (Version 7)
Quarter: 2014Q2

REPORT INFORMATION
  Report Type: Spontaneous
  Country: US (occurrence: US)
  Receive Date: 20120702
  Receipt Date: 20140407
  Transmission Date: 20141212
  Serious: Yes (Hospitalization, Disabling, Other)
  Sender: FDA-Public Use
  Company Number: US-009507513-1206USA04705

PATIENT
  Sex: Female
  Weight: 56.69 kg

DRUGS (9)
  1. FOSAMAX [Suspect]
     Indication: OSTEOPOROSIS
     Dosage: 70 MG, UNK
     Route: 048
     Dates: start: 20000808, end: 20090801
  2. FOSAMAX [Suspect]
     Indication: OSTEOPENIA
     Dosage: 10 MG, UNK
     Route: 048
  3. FOSAMAX [Suspect]
     Dosage: 70 MG, QW
     Route: 048
  4. LEVOXYL [Concomitant]
     Indication: THYROID DISORDER
     Dosage: 5 MG, QD
     Dates: start: 1990
  5. ONE-A-DAY ESSENTIAL VITAMINS [Concomitant]
     Dosage: UNK
     Dates: start: 1970
  6. CALCIUM (UNSPECIFIED) (+) VITAMIN D (UNSPECIFIED) [Concomitant]
     Dosage: UNK
     Dates: start: 1970
  7. PREVACID [Concomitant]
     Dosage: UNK
     Dates: start: 1990
  8. HORMONES (UNSPECIFIED) [Concomitant]
     Dosage: UNK
     Dates: start: 1995
  9. ALENDRONATE SODIUM [Suspect]
     Dosage: 70 MG, UNK

REACTIONS (78)
  - Spinal fracture [Unknown]
  - Wrist fracture [Unknown]
  - Femoral hernia [Unknown]
  - Fall [Unknown]
  - Cough [Unknown]
  - Wrist fracture [Unknown]
  - Bladder prolapse [Unknown]
  - Muscle strain [Unknown]
  - Oestrogen deficiency [Unknown]
  - Neuropathy peripheral [Unknown]
  - Neuropathy peripheral [Unknown]
  - Hypertension [Unknown]
  - Balance disorder [Unknown]
  - Intermittent claudication [Unknown]
  - Peripheral vascular disorder [Unknown]
  - Peripheral vascular disorder [Unknown]
  - Ankle brachial index [Unknown]
  - Arterial injury [Unknown]
  - Popliteal pulse decreased [Unknown]
  - Carotid artery occlusion [Unknown]
  - Carotid artery stenosis [Unknown]
  - Peripheral arterial occlusive disease [Unknown]
  - Hyperlipidaemia [Unknown]
  - Arthropathy [Unknown]
  - Dermatitis [Unknown]
  - Compression fracture [Unknown]
  - Diverticulum intestinal haemorrhagic [Unknown]
  - Intervertebral disc degeneration [Unknown]
  - Diverticulitis [Unknown]
  - Pleurisy viral [Unknown]
  - Spinal pain [Unknown]
  - Bundle branch block left [Unknown]
  - Spinal compression fracture [Unknown]
  - Endoscopic retrograde cholangiopancreatography [Unknown]
  - Hepatomegaly [Unknown]
  - Endoscopic retrograde cholangiopancreatography [Unknown]
  - Bile duct stone [Unknown]
  - Pneumobilia [Unknown]
  - Labyrinthitis [Unknown]
  - Cholelithiasis [Unknown]
  - Liver function test abnormal [Unknown]
  - Urine analysis abnormal [Unknown]
  - Hypokalaemia [Unknown]
  - Tooth disorder [Unknown]
  - Fracture nonunion [Unknown]
  - Sinusitis [Unknown]
  - Glaucoma [Unknown]
  - Electrocardiogram change [Not Recovered/Not Resolved]
  - Blood glucose increased [Unknown]
  - Arthritis [Unknown]
  - Cardiac murmur [Unknown]
  - Irritable bowel syndrome [Unknown]
  - Pain in extremity [Unknown]
  - Oesophageal stenosis [Unknown]
  - Gastrooesophageal reflux disease [Unknown]
  - Dizziness [Unknown]
  - Nausea [Unknown]
  - Nausea [Unknown]
  - Dizziness [Unknown]
  - Dizziness [Unknown]
  - Abdominal pain [Unknown]
  - Pain in extremity [Unknown]
  - Oesophageal stenosis [Unknown]
  - Femur fracture [Unknown]
  - Intramedullary rod insertion [Unknown]
  - Intramedullary rod insertion [Unknown]
  - Stress fracture [Not Recovered/Not Resolved]
  - Osteoporosis [Not Recovered/Not Resolved]
  - Appendicectomy [Unknown]
  - Cataract operation [Unknown]
  - Rectal haemorrhage [Unknown]
  - Low turnover osteopathy [Not Recovered/Not Resolved]
  - Haematocrit decreased [Unknown]
  - Impaired healing [Unknown]
  - Spinal compression fracture [Unknown]
  - Femur fracture [Not Recovered/Not Resolved]
  - Femur fracture [Unknown]
  - Endocardial disease [Unknown]
